FAERS Safety Report 14337368 (Version 1)
Quarter: 2017Q4

REPORT INFORMATION
  Report Type: Spontaneous
  Country: US (occurrence: US)
  Receive Date: 20171228
  Receipt Date: 20171228
  Transmission Date: 20180321
  Serious: Yes (Hospitalization)
  Sender: FDA-Public Use
  Company Number: None

PATIENT
  Age: 63 Year
  Sex: Female

DRUGS (2)
  1. TACROLIMUS CAP 1MG [Suspect]
     Active Substance: TACROLIMUS
  2. MYCOPHENOLATE TAB 180MG DR [Suspect]
     Active Substance: MYCOPHENOLIC ACID

REACTIONS (4)
  - Brain scan abnormal [None]
  - Confusional state [None]
  - Disorientation [None]
  - Gait disturbance [None]

NARRATIVE: CASE EVENT DATE: 20171227
